FAERS Safety Report 7723074-9 (Version None)
Quarter: 2011Q3

REPORT INFORMATION
  Report Type: 
  Country: None (occurrence: None)
  Receive Date: 20110826
  Receipt Date: 20110816
  Transmission Date: 20111222
  Serious: Yes (Hospitalization)
  Sender: FDA-Public Use
  Company Number: GRT 2011-13639

PATIENT
  Age: 81 Year
  Sex: Male

DRUGS (5)
  1. ACETAMINOPHEN [Concomitant]
  2. LIDODERM [Suspect]
     Indication: PHANTOM PAIN
     Dates: start: 20110501, end: 20110516
  3. ASPIRIN [Concomitant]
  4. OMNIC OCAS (TAMSULOSIN HYDROCHLORIDE) [Concomitant]
  5. ADALAT OROS (NIFEDIPINE) [Concomitant]

REACTIONS (5)
  - CARDIAC FAILURE [None]
  - ASTHENIA [None]
  - MALAISE [None]
  - FATIGUE [None]
  - CHRONIC OBSTRUCTIVE PULMONARY DISEASE [None]
